FAERS Safety Report 7722265-0 (Version None)
Quarter: 2011Q3

REPORT INFORMATION
  Report Type: 
  Country: None (occurrence: None)
  Receive Date: 20110831
  Receipt Date: 20110823
  Transmission Date: 20111222
  Serious: Yes (Hospitalization, Other)
  Sender: FDA-Public Use
  Company Number: US-ELI_LILLY_AND_COMPANY-US201107003786

PATIENT
  Sex: Female

DRUGS (13)
  1. ASPIRIN [Concomitant]
  2. PLACEBO [Concomitant]
     Dosage: UNK
     Dates: start: 20101019
  3. LANTUS [Concomitant]
     Dosage: 200 U, QD
     Dates: start: 20110211
  4. VOLTAREN                                /SCH/ [Concomitant]
     Dosage: UNK
     Dates: end: 20110211
  5. SAXAGLIPTIN [Concomitant]
     Indication: TYPE 2 DIABETES MELLITUS
     Dosage: UNK
     Dates: start: 20101019
  6. HYDRALAZINE HCL [Concomitant]
  7. ACTOS [Concomitant]
     Indication: TYPE 2 DIABETES MELLITUS
     Dosage: UNK
     Dates: start: 20101215, end: 20110211
  8. MORPHINE [Concomitant]
     Dosage: UNK
     Dates: start: 20110202, end: 20110203
  9. HUMALOG [Suspect]
     Indication: TYPE 2 DIABETES MELLITUS
     Dosage: UNK
     Dates: start: 20110202, end: 20110217
  10. NOVOLOG [Concomitant]
     Indication: TYPE 2 DIABETES MELLITUS
     Dosage: UNK
     Dates: start: 20090518
  11. LANTUS [Concomitant]
     Dosage: 180 U, QD
     Dates: start: 20090601, end: 20110210
  12. LASIX [Concomitant]
     Dosage: UNK
     Dates: start: 20110202, end: 20110204
  13. NITROGLYCERIN [Concomitant]
     Indication: CHEST PAIN

REACTIONS (15)
  - NON-CARDIAC CHEST PAIN [None]
  - ABDOMINAL PAIN [None]
  - BLOOD GLUCOSE INCREASED [None]
  - SUICIDAL IDEATION [None]
  - HYPERVENTILATION [None]
  - IRRITABLE BOWEL SYNDROME [None]
  - RENAL FAILURE ACUTE [None]
  - TREMOR [None]
  - ASTHMA [None]
  - PULMONARY OEDEMA [None]
  - GASTRITIS [None]
  - DEPRESSION [None]
  - CARDIOMEGALY [None]
  - ANXIETY [None]
  - CHEST PAIN [None]
